FAERS Safety Report 6688752-1 (Version None)
Quarter: 2010Q2

REPORT INFORMATION
  Report Type: 
  Country: None (occurrence: None)
  Receive Date: 20100420
  Receipt Date: 20100408
  Transmission Date: 20101027
  Serious: Yes (Hospitalization)
  Sender: FDA-Public Use
  Company Number: B0647587A

PATIENT
  Age: 53 Year
  Sex: Female

DRUGS (4)
  1. AVANDAMET [Suspect]
     Indication: DIABETES MELLITUS
     Route: 048
     Dates: start: 20090622, end: 20100324
  2. ASPIRIN [Concomitant]
     Route: 048
     Dates: start: 20070402
  3. COZAAR [Concomitant]
     Route: 048
     Dates: start: 20080930
  4. LORAZEPAM [Concomitant]
     Route: 048
     Dates: start: 20070719

REACTIONS (1)
  - GRAND MAL CONVULSION [None]
